FAERS Safety Report 12649666 (Version 2)
Quarter: 2016Q4

REPORT INFORMATION
  Report Type: Spontaneous
  Country: TR (occurrence: TR)
  Receive Date: 20160812
  Receipt Date: 20161110
  Transmission Date: 20170207
  Serious: Yes (Other)
  Sender: FDA-Public Use
  Company Number: TR-REGENERON PHARMACEUTICALS, INC.-2016-20368

PATIENT

DRUGS (2)
  1. EYLEA [Suspect]
     Active Substance: AFLIBERCEPT
     Indication: NEOVASCULAR AGE-RELATED MACULAR DEGENERATION
     Dosage: 1 NOT APPLICABLE, UNK
     Route: 031
     Dates: start: 20160804, end: 20160804
  2. RANIBIZUMAB [Concomitant]
     Active Substance: RANIBIZUMAB
     Indication: PRODUCT USED FOR UNKNOWN INDICATION

REACTIONS (2)
  - Hypertension [Recovered/Resolved]
  - Glaucoma [Recovered/Resolved]

NARRATIVE: CASE EVENT DATE: 20160804
